FAERS Safety Report 5046534-0 (Version None)
Quarter: 2006Q3

REPORT INFORMATION
  Report Type: 
  Country: None (occurrence: None)
  Receive Date: 20060706
  Receipt Date: 20060706
  Transmission Date: 20061208
  Serious: Yes (Hospitalization)
  Sender: FDA-Public Use
  Company Number: None

PATIENT
  Age: 67 Year
  Sex: Male

DRUGS (15)
  1. MOXIFLOXACIN HCL [Suspect]
     Indication: CHRONIC OBSTRUCTIVE PULMONARY DISEASE
     Dosage: 400MG  PO  QD
     Route: 048
     Dates: start: 20060421, end: 20060424
  2. WARFARIN SODIUM [Suspect]
     Indication: ATRIAL FIBRILLATION
     Dosage: 1.75MG  QD  EXC  2.5MG TU-TH-SA
  3. ADVAIR DISKUS 100/50 [Concomitant]
  4. FELODIPINE [Concomitant]
  5. GABAPENTIN [Concomitant]
  6. HYDROCHLOROTHIAZIDE [Concomitant]
  7. ISOSORBIDE DINITRATE [Concomitant]
  8. LEVOTHYROXINE SODIUM [Concomitant]
  9. METOPROLOL TARTRATE [Concomitant]
  10. NAPROXEN [Concomitant]
  11. SERTRALINE [Concomitant]
  12. SIMVASTATIN [Concomitant]
  13. TRAMADL [Concomitant]
  14. VALSARTAN [Concomitant]
  15. WARFARIN SODIUM [Concomitant]

REACTIONS (3)
  - CHRONIC OBSTRUCTIVE PULMONARY DISEASE [None]
  - DRUG PRESCRIBING ERROR [None]
  - INTERNATIONAL NORMALISED RATIO INCREASED [None]
